FAERS Safety Report 8419230-7 (Version None)
Quarter: 2012Q2

REPORT INFORMATION
  Report Type: 
  Country: None (occurrence: None)
  Receive Date: 20120607
  Receipt Date: 20120529
  Transmission Date: 20120825
  Serious: No
  Sender: FDA-Public Use
  Company Number: US-B.I. PHARMACEUTICALS,INC./RIDGEFIELD-2012-BP-12594BP

PATIENT
  Sex: Female

DRUGS (12)
  1. FUROSEMIDE [Concomitant]
     Indication: OEDEMA PERIPHERAL
     Dosage: 20 MG
     Route: 048
     Dates: start: 20100101
  2. POTASSIUM [Concomitant]
     Indication: BLOOD POTASSIUM DECREASED
     Dosage: 10 MEQ
     Route: 048
     Dates: start: 20100301
  3. ZOLPIDEM [Concomitant]
     Indication: INSOMNIA
     Dosage: 10 MG
     Route: 048
     Dates: start: 20020101
  4. VITAMIN B COMPLEX CAP [Concomitant]
     Indication: SUPPLEMENTATION THERAPY
     Dates: start: 20100101
  5. ASPIRIN [Concomitant]
     Dosage: 81 MG
     Route: 048
     Dates: start: 20100101
  6. SINGULAIR [Concomitant]
     Indication: CHRONIC OBSTRUCTIVE PULMONARY DISEASE
     Dosage: 10 MG
     Route: 048
     Dates: start: 20100101
  7. VITAMIN D WITH CALCIUM [Concomitant]
     Indication: SUPPLEMENTATION THERAPY
     Dates: start: 20100101
  8. THEOPHYLLINE [Concomitant]
     Indication: CHRONIC OBSTRUCTIVE PULMONARY DISEASE
     Dosage: 200 MG
     Route: 048
     Dates: start: 20100101
  9. SUPPLEMENTAL OXYGEN [Concomitant]
     Indication: CHRONIC OBSTRUCTIVE PULMONARY DISEASE
     Route: 055
     Dates: start: 20110101
  10. LORAZEPAM [Concomitant]
     Indication: INSOMNIA
     Dosage: 0.5 MG
     Route: 048
     Dates: start: 20020101
  11. SPIRIVA [Suspect]
     Indication: CHRONIC OBSTRUCTIVE PULMONARY DISEASE
     Dosage: 18 MCG
     Route: 055
     Dates: start: 20110101
  12. PHENELZINE SULFATE [Concomitant]
     Indication: DEPRESSION
     Dosage: 45 MG
     Route: 048
     Dates: start: 20080101

REACTIONS (3)
  - NEUROPATHY PERIPHERAL [None]
  - PHARYNGEAL OEDEMA [None]
  - SWOLLEN TONGUE [None]
